FAERS Safety Report 12706223 (Version 2)
Quarter: 2016Q3

REPORT INFORMATION
  Report Type: Spontaneous
  Country: US (occurrence: US)
  Receive Date: 20160901
  Receipt Date: 20160901
  Transmission Date: 20161109
  Serious: No
  Sender: FDA-Public Use
  Company Number: US-JAZZ-2016-US-007906

PATIENT
  Sex: Female

DRUGS (36)
  1. AMLACTIN [Concomitant]
     Active Substance: AMMONIUM LACTATE
  2. HEPARIN FLUSH [Concomitant]
     Active Substance: HEPARIN SODIUM
  3. SILVADENE [Concomitant]
     Active Substance: SILVER SULFADIAZINE
  4. VISTARIL [Concomitant]
     Active Substance: HYDROXYZINE PAMOATE
  5. HYDROMORPHONE [Concomitant]
     Active Substance: HYDROMORPHONE
  6. NARDIL [Concomitant]
     Active Substance: PHENELZINE SULFATE
  7. SIMVASTATIN. [Concomitant]
     Active Substance: SIMVASTATIN
  8. ALBENZA [Concomitant]
     Active Substance: ALBENDAZOLE
  9. SPIRONOLACTONE. [Concomitant]
     Active Substance: SPIRONOLACTONE
  10. DIPHENHYDRAMINE. [Concomitant]
     Active Substance: DIPHENHYDRAMINE
  11. PRAMIPEXOLE. [Concomitant]
     Active Substance: PRAMIPEXOLE
  12. MEBENDAZOLE. [Concomitant]
     Active Substance: MEBENDAZOLE
  13. PREDNISONE. [Concomitant]
     Active Substance: PREDNISONE
  14. ASPIRIN. [Concomitant]
     Active Substance: ASPIRIN
  15. PROMETHAZINE [Concomitant]
     Active Substance: PROMETHAZINE\PROMETHAZINE HYDROCHLORIDE
  16. PROTONIX DR [Concomitant]
  17. CUBICIN [Concomitant]
     Active Substance: DAPTOMYCIN
  18. PROPAFENONE HCL [Concomitant]
     Active Substance: PROPAFENONE HYDROCHLORIDE
  19. TERBINAFINE HCL [Concomitant]
     Active Substance: TERBINAFINE HYDROCHLORIDE
  20. INVANZ [Concomitant]
     Active Substance: ERTAPENEM SODIUM
  21. RESTASIS [Concomitant]
     Active Substance: CYCLOSPORINE
  22. LASIX [Concomitant]
     Active Substance: FUROSEMIDE
  23. ACETAMINOPHEN. [Concomitant]
     Active Substance: ACETAMINOPHEN
  24. POTASSIUM CL ER [Concomitant]
     Active Substance: POTASSIUM CHLORIDE
  25. BENADRYL [Concomitant]
     Active Substance: DIPHENHYDRAMINE HYDROCHLORIDE
  26. SYNTHROID [Concomitant]
     Active Substance: LEVOTHYROXINE SODIUM
  27. ERTAPENEM [Concomitant]
     Active Substance: ERTAPENEM
  28. XYREM [Suspect]
     Active Substance: SODIUM OXYBATE
     Indication: NARCOLEPSY
     Dosage: 4.5 G, BID
     Route: 048
     Dates: start: 201502
  29. FUROSEMIDE. [Concomitant]
     Active Substance: FUROSEMIDE
  30. XYREM [Suspect]
     Active Substance: SODIUM OXYBATE
     Indication: CATAPLEXY
  31. JANTOVEN [Suspect]
     Active Substance: WARFARIN SODIUM
     Indication: PRODUCT USED FOR UNKNOWN INDICATION
     Dosage: UNK
     Dates: start: 201603
  32. GUAIFENESIN ER [Concomitant]
     Active Substance: GUAIFENESIN
  33. HYDROXYZINE HCL [Concomitant]
     Active Substance: HYDROXYZINE HYDROCHLORIDE
  34. HYDROXYZINE [Concomitant]
     Active Substance: HYDROXYZINE\HYDROXYZINE HYDROCHLORIDE
  35. OXYGEN. [Concomitant]
     Active Substance: OXYGEN
  36. COUMADIN [Concomitant]
     Active Substance: WARFARIN SODIUM
     Indication: COAGULOPATHY

REACTIONS (2)
  - International normalised ratio abnormal [Not Recovered/Not Resolved]
  - Tooth loss [Unknown]

NARRATIVE: CASE EVENT DATE: 2016
